FAERS Safety Report 4942874-1 (Version None)
Quarter: 2006Q1

REPORT INFORMATION
  Report Type: 
  Country: None (occurrence: None)
  Receive Date: 20060314
  Receipt Date: 20060307
  Transmission Date: 20060701
  Serious: Yes (Hospitalization, Other)
  Sender: FDA-Public Use
  Company Number: US-BRISTOL-MYERS SQUIBB COMPANY-13305990

PATIENT
  Age: 33 Year
  Sex: Female
  Weight: 62 kg

DRUGS (6)
  1. TEQUIN [Suspect]
     Indication: SINUSITIS
     Route: 048
     Dates: start: 20060127, end: 20060227
  2. PREDNISONE [Concomitant]
  3. ZYRTEC [Concomitant]
  4. ADVAIR DISKUS 100/50 [Concomitant]
  5. FLONASE [Concomitant]
  6. PREVACID [Concomitant]

REACTIONS (2)
  - BLOOD GLUCOSE INCREASED [None]
  - DIABETES MELLITUS [None]
